FAERS Safety Report 25457676 (Version 1)
Quarter: 2025Q2

REPORT INFORMATION
  Report Type: Spontaneous
  Country: FR (occurrence: FR)
  Receive Date: 20250619
  Receipt Date: 20250619
  Transmission Date: 20250717
  Serious: Yes (Life-Threatening, Hospitalization)
  Sender: JOHNSON AND JOHNSON
  Company Number: None

PATIENT
  Age: 57 Year
  Sex: Male
  Weight: 98 kg

DRUGS (12)
  1. RISPERDAL [Interacting]
     Active Substance: RISPERIDONE
     Indication: Psychiatric decompensation
     Route: 048
     Dates: start: 20250510, end: 20250523
  2. RISPERDAL [Interacting]
     Active Substance: RISPERIDONE
     Route: 048
     Dates: start: 20250523, end: 20250602
  3. RISPERDAL [Interacting]
     Active Substance: RISPERIDONE
     Route: 048
     Dates: start: 20250602
  4. RISPERDAL [Interacting]
     Active Substance: RISPERIDONE
  5. RISPERDAL [Interacting]
     Active Substance: RISPERIDONE
  6. RISPERDAL [Interacting]
     Active Substance: RISPERIDONE
  7. PAROXETINE HYDROCHLORIDE [Interacting]
     Active Substance: PAROXETINE HYDROCHLORIDE
     Indication: Psychiatric decompensation
     Route: 048
     Dates: start: 20250528
  8. LOXAPINE SUCCINATE [Concomitant]
     Active Substance: LOXAPINE SUCCINATE
     Indication: Psychiatric decompensation
     Route: 048
     Dates: start: 20250530, end: 20250601
  9. VALIUM [Concomitant]
     Active Substance: DIAZEPAM
     Route: 048
     Dates: start: 20250529, end: 20250602
  10. VALIUM [Concomitant]
     Active Substance: DIAZEPAM
     Route: 048
     Dates: start: 20250602, end: 20250603
  11. VALIUM [Concomitant]
     Active Substance: DIAZEPAM
     Route: 048
     Dates: start: 20250604, end: 20250604
  12. PYRIDOSTIGMINE BROMIDE [Concomitant]
     Active Substance: PYRIDOSTIGMINE BROMIDE
     Indication: Product used for unknown indication
     Route: 065
     Dates: start: 20250530, end: 20250605

REACTIONS (3)
  - Acute myocardial infarction [Recovered/Resolved]
  - Drug interaction [Not Recovered/Not Resolved]
  - Potentiating drug interaction [Not Recovered/Not Resolved]

NARRATIVE: CASE EVENT DATE: 20250528
